FAERS Safety Report 5143583-9 (Version None)
Quarter: 2006Q4

REPORT INFORMATION
  Report Type: 
  Country: None (occurrence: None)
  Receive Date: 20061030
  Receipt Date: 20061016
  Transmission Date: 20070319
  Serious: Yes (Life-Threatening, Hospitalization)
  Sender: FDA-Public Use
  Company Number: 2006003507

PATIENT
  Age: 79 Year
  Sex: Female
  Weight: 70.3 kg

DRUGS (9)
  1. MINOXIDIL [Suspect]
     Dosage: 10 MG (2.5 MG, 2 IN 2 D), ORAL
     Route: 048
     Dates: start: 20051222, end: 20060102
  2. AG-013,736 (AG-013,736) [Suspect]
     Indication: NON-SMALL CELL LUNG CANCER
     Dosage: 10 MG (5 MG, 2 IN 1 D), ORAL
     Route: 048
     Dates: start: 20051123
  3. TOPROL-XL [Concomitant]
  4. CALAN [Concomitant]
  5. COMPAZINE [Concomitant]
  6. CELEBREX [Concomitant]
  7. OXYCODONE HCL [Concomitant]
  8. POTASSIUM (POTASSIUM) [Concomitant]
  9. PREMARIN [Concomitant]

REACTIONS (3)
  - BRADYCARDIA [None]
  - DRUG INTERACTION [None]
  - RENAL FAILURE ACUTE [None]
